FAERS Safety Report 17582838 (Version 3)
Quarter: 2020Q3

REPORT INFORMATION
  Report Type: Spontaneous
  Country: US (occurrence: US)
  Receive Date: 20200325
  Receipt Date: 20200930
  Transmission Date: 20201102
  Serious: No
  Sender: FDA-Public Use
  Company Number: US-ASTRAZENECA-2020SE06591

PATIENT
  Sex: Male
  Weight: 96.2 kg

DRUGS (2)
  1. BYDUREON BCISE [Suspect]
     Active Substance: EXENATIDE
     Indication: TYPE 2 DIABETES MELLITUS
     Route: 058
     Dates: start: 202002
  2. METFORMIN [Concomitant]
     Active Substance: METFORMIN HYDROCHLORIDE
     Indication: TYPE 2 DIABETES MELLITUS
     Route: 048

REACTIONS (6)
  - Drug delivery system issue [Unknown]
  - Needle issue [Unknown]
  - Incorrect dose administered [Unknown]
  - Injection site pain [Unknown]
  - Intentional device use issue [Unknown]
  - Injection site mass [Not Recovered/Not Resolved]
